FAERS Safety Report 8497596 (Version 2)
Quarter: 2012Q4

REPORT INFORMATION
  Report Type: Report from Study
  Country: NL (occurrence: NL)
  Receive Date: 20120406
  Receipt Date: 20121023
  Transmission Date: 20130627
  Serious: Yes (Death, Hospitalization)
  Sender: FDA-Public Use
  Company Number: NL-ROCHE-1052242

PATIENT
  Age: 69 Year
  Sex: Male

DRUGS (3)
  1. EPIRUBICIN HYDROCHLORIDE [Suspect]
     Indication: GASTRIC CANCER
     Dosage: Date of last dose prior to SAE: 29/Feb/2012
     Route: 042
     Dates: start: 20120207
  2. CAPECITABINE [Suspect]
     Indication: GASTRIC CANCER
     Dosage: Date of last dose prior to SAE: 11/Mar/2012
     Route: 048
     Dates: start: 20120207
  3. CISPLATIN [Suspect]
     Indication: GASTRIC CANCER
     Dosage: Date of last dose prior to SAE: 29/Feb/2012
     Route: 042
     Dates: start: 20120207

REACTIONS (2)
  - Infection [Fatal]
  - Mucosal inflammation [Not Recovered/Not Resolved]
